FAERS Safety Report 13690935 (Version 1)
Quarter: 2017Q2

REPORT INFORMATION
  Report Type: Spontaneous
  Country: US (occurrence: US)
  Receive Date: 20170626
  Receipt Date: 20170626
  Transmission Date: 20170830
  Serious: No
  Sender: FDA-Public Use
  Company Number: US-IMPAX LABORATORIES, INC-2017-IPXL-00564

PATIENT
  Age: 59 Year
  Sex: Female
  Weight: 75 kg

DRUGS (1)
  1. NABUMETONE IR [Suspect]
     Active Substance: NABUMETONE
     Indication: PRODUCT USED FOR UNKNOWN INDICATION
     Dosage: 750 MG, 2 TABLETS DAILY
     Route: 065
     Dates: start: 20170213, end: 20170215

REACTIONS (2)
  - Insomnia [None]
  - Muscle spasms [Unknown]

NARRATIVE: CASE EVENT DATE: 201702
